FAERS Safety Report 8086192-4 (Version None)
Quarter: 2012Q1

REPORT INFORMATION
  Report Type: 
  Country: None (occurrence: None)
  Receive Date: 20120128
  Receipt Date: 20110415
  Transmission Date: 20120608
  Serious: No
  Sender: FDA-Public Use
  Company Number: US-ABBOTT-11P-163-0719544-00

PATIENT
  Age: 74 Year
  Sex: Female

DRUGS (2)
  1. HUMIRA [Suspect]
     Indication: CROHN'S DISEASE
     Dates: start: 20110401
  2. ELAVIL [Concomitant]
     Indication: INSOMNIA
     Route: 048

REACTIONS (3)
  - CROHN'S DISEASE [None]
  - HERPES ZOSTER [None]
  - ABDOMINAL PAIN [None]
